FAERS Safety Report 6058565-2 (Version None)
Quarter: 2009Q1

REPORT INFORMATION
  Report Type: 
  Country: None (occurrence: None)
  Receive Date: 20090130
  Receipt Date: 20090129
  Transmission Date: 20090719
  Serious: Yes (Life-Threatening, Hospitalization)
  Sender: FDA-Public Use
  Company Number: BR-ASTRAZENECA-2009UW02585

PATIENT
  Age: 64 Year
  Sex: Male

DRUGS (3)
  1. ATACAND HCT [Suspect]
     Dosage: 16/12.5 MG
     Route: 048
     Dates: start: 20070701
  2. ABLOK [Concomitant]
     Indication: HYPERTENSION
     Route: 048
  3. INDAPAMIDE [Concomitant]
     Indication: HYPERTENSION
     Route: 048

REACTIONS (2)
  - BLOOD PRESSURE INCREASED [None]
  - SYNCOPE [None]
